FAERS Safety Report 8920794 (Version 1)
Quarter: 2012Q4

REPORT INFORMATION
  Report Type: 
  Country: US (occurrence: US)
  Receive Date: 20121121
  Receipt Date: 20121121
  Transmission Date: 20130627
  Serious: Yes (Hospitalization, Other)
  Sender: FDA-Public Use
  Company Number: US-ASTRAZENECA-2012SE85942

PATIENT
  Age: 74 Year
  Sex: Female
  Weight: 62.6 kg

DRUGS (9)
  1. ATENOLOL [Suspect]
     Indication: BLOOD PRESSURE
     Route: 048
  2. SYMBICORT [Suspect]
     Indication: CHRONIC OBSTRUCTIVE PULMONARY DISEASE
     Dosage: TWO TIMES A DAY
     Route: 055
     Dates: start: 2010
  3. ACCOLATE [Suspect]
     Indication: ASTHMA
     Route: 048
  4. VERAPAMIL [Concomitant]
     Indication: BLOOD PRESSURE ABNORMAL
     Route: 048
  5. AVAPRO [Concomitant]
     Indication: BLOOD PRESSURE ABNORMAL
     Dosage: AS REQUIRED
     Route: 048
  6. LIPITOR [Concomitant]
     Indication: BLOOD CHOLESTEROL INCREASED
     Route: 048
  7. TRICHLOR [Concomitant]
     Indication: BLOOD CHOLESTEROL INCREASED
     Dosage: DAILY
     Route: 048
  8. ALBUTEROL [Concomitant]
     Indication: CHRONIC OBSTRUCTIVE PULMONARY DISEASE
     Dosage: AS REQUIRED
     Route: 048
  9. ROBITUSSIN [Concomitant]
     Indication: COUGH
     Dosage: AS REQUIRED
     Route: 048

REACTIONS (5)
  - Colon cancer [Recovered/Resolved]
  - Lower limb fracture [Recovering/Resolving]
  - Cartilage injury [Recovering/Resolving]
  - Post procedural cellulitis [Recovered/Resolved]
  - Arthritis [Not Recovered/Not Resolved]
